FAERS Safety Report 24355947 (Version 1)
Quarter: 2024Q3

REPORT INFORMATION
  Report Type: Spontaneous
  Country: US (occurrence: US)
  Receive Date: 20240924
  Receipt Date: 20240924
  Transmission Date: 20241016
  Serious: No
  Sender: TAKEDA
  Company Number: US-TAKEDA-2024TUS092105

PATIENT

DRUGS (1)
  1. VYVANSE [Suspect]
     Active Substance: LISDEXAMFETAMINE DIMESYLATE
     Indication: Product used for unknown indication
     Dosage: 2 DOSAGE FORM
     Route: 065

REACTIONS (6)
  - Product use issue [Unknown]
  - Product availability issue [Unknown]
  - Therapeutic product effect variable [Unknown]
  - Product dosage form issue [Unknown]
  - Feeling jittery [Unknown]
  - Anxiety [Unknown]
